FAERS Safety Report 20799879 (Version 1)
Quarter: 2022Q2

REPORT INFORMATION
  Report Type: Report from Study
  Country: US (occurrence: US)
  Receive Date: 20220509
  Receipt Date: 20220509
  Transmission Date: 20220721
  Serious: Yes (Hospitalization)
  Sender: FDA-Public Use
  Company Number: US-BAYER-2022A063628

PATIENT
  Age: 59 Year
  Sex: Female
  Weight: 95.238 kg

DRUGS (6)
  1. ADEMPAS [Suspect]
     Active Substance: RIOCIGUAT
     Indication: Pulmonary arterial hypertension
     Dosage: UNK
     Dates: start: 20190321
  2. ADEMPAS [Suspect]
     Active Substance: RIOCIGUAT
     Indication: Pulmonary arterial hypertension
     Dosage: 2.5 MG, TID
     Route: 048
  3. ORENITRAM [Concomitant]
     Active Substance: TREPROSTINIL
     Dosage: UNK
  4. OPSUMIT [Concomitant]
     Active Substance: MACITENTAN
     Dosage: UNK
  5. LASIX [Concomitant]
     Active Substance: FUROSEMIDE
     Dosage: UNK
  6. LASIX [Concomitant]
     Active Substance: FUROSEMIDE
     Dosage: 1 DF, QD

REACTIONS (1)
  - Full blood count abnormal [None]

NARRATIVE: CASE EVENT DATE: 20220401
